FAERS Safety Report 5663199-5 (Version None)
Quarter: 2008Q1

REPORT INFORMATION
  Report Type: 
  Country: None (occurrence: None)
  Receive Date: 20080313
  Receipt Date: 20080301
  Transmission Date: 20080703
  Serious: Yes (Other)
  Sender: FDA-Public Use
  Company Number: US-PFIZER INC-2007104361

PATIENT
  Sex: Male
  Weight: 79.545 kg

DRUGS (5)
  1. LITHIUM [Suspect]
     Indication: BIPOLAR DISORDER
  2. LISINOPRIL [Suspect]
     Indication: HYPERTENSION
     Dates: start: 20070501, end: 20070901
  3. LISINOPRIL [Suspect]
  4. MOBAN [Concomitant]
  5. LAMICTAL [Concomitant]

REACTIONS (3)
  - HYPERTENSION [None]
  - RADICAL PROSTATECTOMY [None]
  - RENAL IMPAIRMENT [None]
